FAERS Safety Report 16651303 (Version 1)
Quarter: 2019Q3

REPORT INFORMATION
  Report Type: Spontaneous
  Country: US (occurrence: US)
  Receive Date: 20190731
  Receipt Date: 20190731
  Transmission Date: 20191004
  Serious: Yes (Disabling, Other)
  Sender: FDA-Public Use
  Company Number: US-SA-2019SA201599

PATIENT
  Sex: Female

DRUGS (1)
  1. GOLD BOND ORIGINAL STRENGTH POWDER [Suspect]
     Active Substance: MENTHOL\ZINC OXIDE
     Dosage: UNK, UNK

REACTIONS (6)
  - Deformity [Unknown]
  - Exposure to toxic agent [Unknown]
  - Disability [Unknown]
  - Pain [Unknown]
  - Mesothelioma [Unknown]
  - Anxiety [Unknown]
